FAERS Safety Report 16969269 (Version 3)
Quarter: 2019Q4

REPORT INFORMATION
  Report Type: Spontaneous
  Country: US (occurrence: US)
  Receive Date: 20191029
  Receipt Date: 20191108
  Transmission Date: 20200122
  Serious: Yes (Disabling, Other)
  Sender: FDA-Public Use
  Company Number: US-CELGENEUS-USA-20191008605

PATIENT
  Sex: Male
  Weight: 112.14 kg

DRUGS (3)
  1. REVLIMID [Suspect]
     Active Substance: LENALIDOMIDE
     Indication: PLASMA CELL MYELOMA
     Route: 048
     Dates: start: 20150104
  2. REVLIMID [Suspect]
     Active Substance: LENALIDOMIDE
     Dosage: 15 MILLIGRAM
     Route: 048
     Dates: start: 201512
  3. REVLIMID [Suspect]
     Active Substance: LENALIDOMIDE
     Dosage: 10 MILLIGRAM
     Route: 048
     Dates: start: 201805

REACTIONS (8)
  - Diarrhoea [Unknown]
  - Multiple sclerosis [Unknown]
  - Bone lesion [Unknown]
  - Pain in extremity [Unknown]
  - Restless legs syndrome [Recovering/Resolving]
  - Osteoarthritis [Unknown]
  - Exostosis [Recovering/Resolving]
  - Neuropathy peripheral [Unknown]
